FAERS Safety Report 13644479 (Version 1)
Quarter: 2017Q2

REPORT INFORMATION
  Report Type: Spontaneous
  Country: US (occurrence: US)
  Receive Date: 20170612
  Receipt Date: 20170612
  Transmission Date: 20170830
  Serious: No
  Sender: FDA-Public Use
  Company Number: US-ROCHE-1314455

PATIENT
  Sex: Male

DRUGS (3)
  1. METFORMIN HYDROCHLORIDE. [Concomitant]
     Active Substance: METFORMIN HYDROCHLORIDE
     Route: 065
  2. OXYCODONE [Concomitant]
     Active Substance: OXYCODONE
  3. XELODA [Suspect]
     Active Substance: CAPECITABINE
     Indication: PENILE CANCER
     Dosage: 14 DAYS ON AND 7 DAYS OFF
     Route: 048
     Dates: start: 20131031

REACTIONS (4)
  - Vomiting [Unknown]
  - Nausea [Unknown]
  - Fatigue [Unknown]
  - Erythema [Unknown]
